FAERS Safety Report 10584779 (Version 1)
Quarter: 2014Q4

REPORT INFORMATION
  Report Type: Spontaneous
  Country: US (occurrence: None)
  Receive Date: 20141113
  Receipt Date: 20141113
  Transmission Date: 20150529
  Serious: Yes (Hospitalization)
  Sender: FDA-Public Use
  Company Number: None

PATIENT
  Age: 75 Year
  Sex: Female
  Weight: 72 kg

DRUGS (2)
  1. TAXOL [Suspect]
     Active Substance: PACLITAXEL
  2. CARBOPLATIN. [Suspect]
     Active Substance: CARBOPLATIN

REACTIONS (7)
  - Dehydration [None]
  - Vomiting [None]
  - Abdominal pain upper [None]
  - Heart rate increased [None]
  - Nausea [None]
  - Oesophagitis ulcerative [None]
  - Gastritis [None]

NARRATIVE: CASE EVENT DATE: 20140811
